FAERS Safety Report 24990701 (Version 2)
Quarter: 2025Q1

REPORT INFORMATION
  Report Type: Report from Study
  Country: GB (occurrence: GB)
  Receive Date: 20250220
  Receipt Date: 20250310
  Transmission Date: 20250409
  Serious: Yes (Hospitalization, Other)
  Sender: AMGEN
  Company Number: GB-AMGEN-GBRSL2023018698

PATIENT
  Age: 83 Year
  Sex: Female

DRUGS (2)
  1. ADALIMUMAB [Suspect]
     Active Substance: ADALIMUMAB
     Indication: Psoriatic arthropathy
     Dosage: 40 MILLIGRAM, Q2WK
     Route: 065
  2. ADALIMUMAB [Suspect]
     Active Substance: ADALIMUMAB
     Dosage: 40 MILLIGRAM, Q3WK
     Route: 065

REACTIONS (14)
  - Norovirus infection [Recovered/Resolved]
  - Renal disorder [Unknown]
  - Feeding disorder [Unknown]
  - Exercise tolerance decreased [Unknown]
  - Poor venous access [Unknown]
  - Malaise [Unknown]
  - Arthropathy [Unknown]
  - Dyspnoea [Unknown]
  - Atrial fibrillation [Unknown]
  - Infection [Unknown]
  - Peripheral swelling [Unknown]
  - Asthma [Unknown]
  - Off label use [Unknown]
  - Product dose omission issue [Unknown]
